FAERS Safety Report 12109691 (Version 1)
Quarter: 2016Q1

REPORT INFORMATION
  Report Type: Spontaneous
  Country: US (occurrence: US)
  Receive Date: 20160224
  Receipt Date: 20160224
  Transmission Date: 20160526
  Serious: Yes (Other)
  Sender: FDA-Public Use
  Company Number: US-ACTAVIS-2016-03634

PATIENT
  Age: 70 Year
  Sex: Female

DRUGS (2)
  1. PYLERA [Suspect]
     Active Substance: BISMUTH SUBCITRATE POTASSIUM\METRONIDAZOLE\TETRACYCLINE HYDROCHLORIDE
     Indication: HELICOBACTER TEST POSITIVE
     Dosage: 3 CAPSULES FOUR TIMES DAILY
     Route: 048
     Dates: start: 20160204, end: 20160210
  2. CITALOPRAM [Concomitant]
     Active Substance: CITALOPRAM HYDROBROMIDE
     Indication: ANXIETY
     Dosage: 0.5 MG, UNKNOWN
     Route: 048

REACTIONS (14)
  - Skin discolouration [Recovered/Resolved]
  - Inappropriate schedule of drug administration [Unknown]
  - Toxicity to various agents [Recovered/Resolved]
  - Dyspepsia [Recovered/Resolved]
  - Abnormal faeces [Recovered/Resolved]
  - Nausea [Recovering/Resolving]
  - Paraesthesia [Recovered/Resolved]
  - Gait disturbance [Recovered/Resolved]
  - Hypoaesthesia [Recovered/Resolved]
  - Asthenia [Not Recovered/Not Resolved]
  - Headache [Not Recovered/Not Resolved]
  - Diarrhoea [Recovered/Resolved]
  - Feeling abnormal [Recovered/Resolved]
  - Abdominal distension [Recovered/Resolved]

NARRATIVE: CASE EVENT DATE: 20160204
